FAERS Safety Report 24465637 (Version 1)
Quarter: 2024Q4

REPORT INFORMATION
  Report Type: Report from Study
  Country: US (occurrence: US)
  Receive Date: 20241018
  Receipt Date: 20241018
  Transmission Date: 20250114
  Serious: No
  Sender: ROCHE
  Company Number: US-ROCHE-3513876

PATIENT
  Sex: Female

DRUGS (3)
  1. XOLAIR [Suspect]
     Active Substance: OMALIZUMAB
     Indication: Urticaria
     Route: 065
     Dates: start: 2022
  2. XOLAIR [Suspect]
     Active Substance: OMALIZUMAB
     Indication: Joint swelling
  3. XOLAIR [Suspect]
     Active Substance: OMALIZUMAB
     Indication: Post-acute COVID-19 syndrome

REACTIONS (1)
  - Condition aggravated [Not Recovered/Not Resolved]
